FAERS Safety Report 8967727 (Version 1)
Quarter: 2012Q4

REPORT INFORMATION
  Report Type: Spontaneous
  Country: US (occurrence: None)
  Receive Date: 20121213
  Receipt Date: 20121213
  Transmission Date: 20130627
  Serious: No
  Sender: FDA-Public Use
  Company Number: None

PATIENT
  Age: 73 Year
  Sex: Male
  Weight: 110.9 kg

DRUGS (1)
  1. LISINOPRIL [Suspect]
     Dosage: MG   PO
     Route: 048
     Dates: start: 20100806, end: 20120620

REACTIONS (2)
  - Stridor [None]
  - Angioedema [None]
